FAERS Safety Report 7761360-7 (Version None)
Quarter: 2011Q3

REPORT INFORMATION
  Report Type: 
  Country: None (occurrence: None)
  Receive Date: 20110920
  Receipt Date: 20110916
  Transmission Date: 20111222
  Serious: No
  Sender: FDA-Public Use
  Company Number: US-PFIZER INC-2011220283

PATIENT
  Sex: Female
  Weight: 58.95 kg

DRUGS (1)
  1. ADVIL COLD AND SINUS [Suspect]
     Indication: NASOPHARYNGITIS
     Dosage: UNK, DAILY
     Dates: start: 20110915, end: 20110916

REACTIONS (1)
  - URTICARIA [None]
